FAERS Safety Report 9706058 (Version 3)
Quarter: 2013Q4

REPORT INFORMATION
  Report Type: Spontaneous
  Country: US (occurrence: US)
  Receive Date: 20131123
  Receipt Date: 20131205
  Transmission Date: 20140711
  Serious: Yes (Other)
  Sender: FDA-Public Use
  Company Number: US-AMGEN-USASP2013080451

PATIENT
  Age: 76 Year
  Sex: Female
  Weight: 72.11 kg

DRUGS (1)
  1. XGEVA [Suspect]
     Indication: OSTEOPOROSIS POSTMENOPAUSAL
     Dosage: 120 MG, UNK
     Route: 058
     Dates: start: 20131112

REACTIONS (2)
  - Wrong drug administered [Unknown]
  - Incorrect dose administered [Unknown]
